FAERS Safety Report 5202950-5 (Version None)
Quarter: 2006Q4

REPORT INFORMATION
  Report Type: 
  Country: None (occurrence: None)
  Receive Date: 20061018
  Receipt Date: 20060117
  Transmission Date: 20070319
  Serious: Yes (Other)
  Sender: FDA-Public Use
  Company Number: PHEH2005US11754

PATIENT
  Age: 74 Year
  Sex: Male

DRUGS (8)
  1. ZOMETA [Suspect]
     Indication: METASTASES TO BONE
     Dosage: 4 MG EVERY MONTH, INFUSION
     Dates: start: 20030114, end: 20060601
  2. LUPRON [Concomitant]
  3. ATENOLOL [Concomitant]
  4. NEURONTIN [Concomitant]
  5. ZANAFLEX [Concomitant]
  6. ALTACE [Concomitant]
  7. ATORVASTATIN CALCIUM [Concomitant]
  8. CASODEX [Concomitant]

REACTIONS (1)
  - BLOOD CREATININE INCREASED [None]
